FAERS Safety Report 4454034-1 (Version None)
Quarter: 2004Q3

REPORT INFORMATION
  Report Type: 
  Country: None (occurrence: None)
  Receive Date: 20040826
  Receipt Date: 20040507
  Transmission Date: 20050211
  Serious: No
  Sender: FDA-Public Use
  Company Number: WAES 0403USA00029

PATIENT
  Age: 80 Year
  Sex: Male
  Weight: 68.9467 kg

DRUGS (3)
  1. ZETIA [Suspect]
     Indication: BLOOD CHOLESTEROL INCREASED
     Dosage: 10 MG, DAILY, PO
     Route: 048
     Dates: start: 20040119, end: 20040227
  2. ZETIA [Suspect]
     Indication: HYPERLIPIDAEMIA
     Dosage: 10 MG, DAILY, PO
     Route: 048
     Dates: start: 20040119, end: 20040227
  3. ATENOLOL [Concomitant]

REACTIONS (1)
  - RASH ERYTHEMATOUS [None]
